FAERS Safety Report 11825080 (Version 1)
Quarter: 2015Q4

REPORT INFORMATION
  Report Type: Spontaneous
  Country: US (occurrence: US)
  Receive Date: 20151211
  Receipt Date: 20151211
  Transmission Date: 20160305
  Serious: Yes (Death, Hospitalization)
  Sender: FDA-Public Use
  Company Number: US-HOSPIRA-3098091

PATIENT
  Age: 53 Year
  Sex: Female

DRUGS (1)
  1. HEPARIN SODIUM. [Suspect]
     Active Substance: HEPARIN SODIUM
     Indication: MYOCARDIAL INFARCTION
     Route: 041

REACTIONS (8)
  - Thrombosis [Fatal]
  - Upper gastrointestinal haemorrhage [Unknown]
  - Infarction [Unknown]
  - Peripheral coldness [Unknown]
  - Pulse absent [Unknown]
  - Heparin-induced thrombocytopenia [Fatal]
  - Ischaemic stroke [Unknown]
  - Intestinal ischaemia [Unknown]
